FAERS Safety Report 10493850 (Version 3)
Quarter: 2014Q4

REPORT INFORMATION
  Report Type: Report from Study
  Country: FR (occurrence: FR)
  Receive Date: 20141003
  Receipt Date: 20141016
  Transmission Date: 20150528
  Serious: Yes (Hospitalization)
  Sender: FDA-Public Use
  Company Number: FR-ROCHE-1467634

PATIENT
  Age: 70 Year
  Sex: Female
  Weight: 42 kg

DRUGS (5)
  1. BROMAZEPAM [Concomitant]
     Active Substance: BROMAZEPAM
     Indication: ANXIETY
     Route: 048
  2. METOCLOPRAMIDE. [Concomitant]
     Active Substance: METOCLOPRAMIDE
     Indication: NAUSEA
     Dosage: IF REQUIRED
     Route: 048
     Dates: start: 20140718, end: 20140719
  3. ZELBORAF [Suspect]
     Active Substance: VEMURAFENIB
     Indication: METASTASES TO BONE
  4. ZELBORAF [Suspect]
     Active Substance: VEMURAFENIB
     Indication: NEOPLASM MALIGNANT
     Route: 048
     Dates: start: 20140718, end: 20140728
  5. STABLON [Concomitant]
     Active Substance: TIANEPTINE
     Indication: ANXIETY
     Route: 048

REACTIONS (3)
  - Rash [Recovered/Resolved]
  - Acne [Recovered/Resolved]
  - Erythema [Recovered/Resolved]

NARRATIVE: CASE EVENT DATE: 20140725
